FAERS Safety Report 5518502-3 (Version None)
Quarter: 2007Q4

REPORT INFORMATION
  Report Type: 
  Country: None (occurrence: None)
  Receive Date: 20071115
  Receipt Date: 20071109
  Transmission Date: 20080405
  Serious: Yes (Death)
  Sender: FDA-Public Use
  Company Number: US-ASTRAZENECA-2007UW03709

PATIENT
  Age: 872 Month
  Sex: Female
  Weight: 75.9 kg

DRUGS (1)
  1. SEROQUEL [Suspect]
     Route: 048
     Dates: start: 20020901, end: 20040501

REACTIONS (3)
  - BLOOD GLUCOSE ABNORMAL [None]
  - METASTATIC MALIGNANT MELANOMA [None]
  - TYPE 2 DIABETES MELLITUS [None]
